FAERS Safety Report 5989623-6 (Version None)
Quarter: 2008Q4

REPORT INFORMATION
  Report Type: 
  Country: None (occurrence: None)
  Receive Date: 20081208
  Receipt Date: 20081120
  Transmission Date: 20090506
  Serious: Yes (Other)
  Sender: FDA-Public Use
  Company Number: FACT0800177

PATIENT
  Sex: Male

DRUGS (2)
  1. FACTIVE [Suspect]
     Indication: RESPIRATORY TRACT INFECTION
     Dosage: 320 MG;QD;ORAL
     Route: 048
     Dates: start: 20081101
  2. NAPROXEN SODIUM [Concomitant]

REACTIONS (1)
  - CONVULSION [None]
